FAERS Safety Report 22144890 (Version 1)
Quarter: 2023Q1

REPORT INFORMATION
  Report Type: Spontaneous
  Country: DK (occurrence: DK)
  Receive Date: 20230328
  Receipt Date: 20230328
  Transmission Date: 20230418
  Serious: Yes (Hospitalization)
  Sender: FDA-Public Use
  Company Number: DK-ALKEM LABORATORIES LIMITED-DK-ALKEM-2023-03149

PATIENT
  Age: 66 Year
  Sex: Female

DRUGS (2)
  1. ITRACONAZOLE [Suspect]
     Active Substance: ITRACONAZOLE
     Indication: Onychomycosis
     Dosage: 100 MILLIGRAM, BID
     Route: 048
  2. AMOROLFINE [Concomitant]
     Active Substance: AMOROLFINE
     Indication: Onychomycosis
     Dosage: UNK
     Route: 065

REACTIONS (2)
  - Pseudoaldosteronism [Unknown]
  - Treatment noncompliance [Unknown]
